FAERS Safety Report 18349569 (Version 4)
Quarter: 2020Q4

REPORT INFORMATION
  Report Type: Spontaneous
  Country: US (occurrence: US)
  Receive Date: 20201006
  Receipt Date: 20201202
  Transmission Date: 20210114
  Serious: No
  Sender: FDA-Public Use
  Company Number: US-JNJFOC-20200949959

PATIENT
  Age: 56 Year
  Sex: Male
  Weight: 91.71 kg

DRUGS (1)
  1. TREMFYA [Suspect]
     Active Substance: GUSELKUMAB
     Indication: PSORIASIS
     Route: 058
     Dates: start: 202006

REACTIONS (6)
  - Device issue [Unknown]
  - Pain [Unknown]
  - Erythema [Unknown]
  - Urticaria [Recovered/Resolved with Sequelae]
  - Swelling [Unknown]
  - Poor quality product administered [Unknown]

NARRATIVE: CASE EVENT DATE: 2020
